FAERS Safety Report 24311421 (Version 2)
Quarter: 2024Q4

REPORT INFORMATION
  Report Type: Spontaneous
  Country: GB (occurrence: GB)
  Receive Date: 20240912
  Receipt Date: 20241024
  Transmission Date: 20250114
  Serious: Yes (Death, Other)
  Sender: MYLAN
  Company Number: GB-MYLANLABS-2024M1083184

PATIENT
  Age: 94 Year
  Sex: Female

DRUGS (13)
  1. CLOZARIL [Suspect]
     Active Substance: CLOZAPINE
     Indication: Major depression
     Dosage: 25 MILLIGRAM, QD (ONCE DAILY)
     Route: 048
     Dates: start: 20100328, end: 20240907
  2. ORALIEVE MOISTURISING MOUTH GEL [Concomitant]
     Dosage: UNK, PRN (USE AS REQUIRED) (50 ML FORMULATION)
     Route: 065
     Dates: start: 20240906
  3. ACETAMINOPHEN [Concomitant]
     Active Substance: ACETAMINOPHEN
     Dosage: 10 MILLILITER, QID (1000 ML FORMULATION)
     Route: 065
     Dates: start: 20240903
  4. CALCIUM CARBONATE\CHOLECALCIFEROL [Concomitant]
     Active Substance: CALCIUM CARBONATE\CHOLECALCIFEROL
     Dosage: 1 DOSAGE FORM, BID (TAKE ONE TABLET TWICE A DAY) (56 TABLET FORMULATION)
     Route: 065
     Dates: start: 20240902
  5. BUTYLSCOPOLAMINE BROMIDE [Concomitant]
     Active Substance: BUTYLSCOPOLAMINE BROMIDE
     Dosage: 20 MILLIGRAM, QH (HOURLY AS REQUIRED) (5 AMPOULE FORMULATION)
     Route: 058
     Dates: start: 20240830
  6. LEVOMEPROMAZINE [Concomitant]
     Active Substance: LEVOMEPROMAZINE
     Dosage: (2.5-5 MILLIGRAM 1-2 HOURLY AS REQUIRED) (5 AMPOULE FORMULATION)
     Route: 058
     Dates: start: 20240830
  7. WATER [Concomitant]
     Active Substance: WATER
     Dosage: UNK (AS DIRECTED) (10 AMPOULE FORMULATION)
     Route: 065
     Dates: start: 20240830
  8. MORPHINE SULFATE [Concomitant]
     Active Substance: MORPHINE SULFATE
     Indication: Pain
     Dosage: 2 MILLIGRAM, QH (AS REQUIRED) (5 AMPOULE FORMULATION)
     Route: 058
     Dates: start: 20240830
  9. MIDAZOLAM [Concomitant]
     Active Substance: MIDAZOLAM
     Dosage: UNK, QH (2-5 MILLIGRAM HOURLY AS REQUIRED) (5 AMPOULE FORMULATION)
     Route: 058
     Dates: start: 20240830
  10. AMOXICILLIN [Concomitant]
     Active Substance: AMOXICILLIN
     Dosage: 10 MILLILITER, TID (THREE TIMES A DAY) (200 ML FORMULATION)
     Route: 065
     Dates: start: 20240827
  11. NYSTATIN [Concomitant]
     Active Substance: NYSTATIN
     Dosage: 1 MILLILITER, QID (1ML DROPPED INTO THE MOUTH FOUR TIMES A DAY) (30ML FORMULATION)
     Route: 048
     Dates: start: 20240827
  12. FUCIDIN [Concomitant]
     Active Substance: FUSIDATE SODIUM
     Dosage: UNK, TID (APPLY 3 TIMES DAILY FOR 1 WEEK) (15 GRAM FORMULATION)
     Route: 065
     Dates: start: 20240820
  13. VENLAFAXINE HYDROCHLORIDE [Concomitant]
     Active Substance: VENLAFAXINE HYDROCHLORIDE
     Dosage: 1 DOSAGE FORM, QD (1 CAPSULE ONCE DAILY) (1 CAPSULE FORMULATION)
     Route: 065
     Dates: start: 20240403

REACTIONS (8)
  - Death [Fatal]
  - Terminal state [Unknown]
  - General physical health deterioration [Unknown]
  - Asthenia [Unknown]
  - Mobility decreased [Unknown]
  - Infection [Unknown]
  - Constipation [Unknown]
  - Off label use [Unknown]

NARRATIVE: CASE EVENT DATE: 20240827
